FAERS Safety Report 4289690-4 (Version None)
Quarter: 2004Q1

REPORT INFORMATION
  Report Type: 
  Country: None (occurrence: None)
  Receive Date: 20040126
  Receipt Date: 20030918
  Transmission Date: 20041129
  Serious: Yes (Death, Hospitalization)
  Sender: FDA-Public Use
  Company Number: HQWYE776419SEP03

PATIENT
  Age: 67 Year
  Sex: Female

DRUGS (2)
  1. RAPAMUNE [Suspect]
     Indication: PROPHYLAXIS AGAINST TRANSPLANT REJECTION
     Dosage: 1MG, ORAL
     Route: 048
     Dates: start: 20030701
  2. PREDNISONE [Concomitant]

REACTIONS (1)
  - PNEUMONITIS [None]
